FAERS Safety Report 19593449 (Version 1)
Quarter: 2021Q3

REPORT INFORMATION
  Report Type: Spontaneous
  Country: DE (occurrence: DE)
  Receive Date: 20210722
  Receipt Date: 20210722
  Transmission Date: 20211014
  Serious: Yes (Other)
  Sender: FDA-Public Use
  Company Number: DE-TEVA-2021-DE-1933903

PATIENT
  Age: 34 Year
  Weight: 80 kg

DRUGS (5)
  1. ATOMOXETIN [Suspect]
     Active Substance: ATOMOXETINE HYDROCHLORIDE
     Dosage: 65MG
     Route: 065
     Dates: start: 20200625, end: 20200910
  2. THIAMIN [Concomitant]
     Active Substance: THIAMINE
     Dosage: 100MG
     Dates: start: 20200619, end: 20200702
  3. ATOMOXETIN [Suspect]
     Active Substance: ATOMOXETINE HYDROCHLORIDE
     Dosage: 60MG
     Route: 065
     Dates: start: 20200624, end: 20200624
  4. ATOMOXETIN [Suspect]
     Active Substance: ATOMOXETINE HYDROCHLORIDE
     Dosage: 40MG
     Route: 065
     Dates: start: 20200619, end: 20200623
  5. NOVALGIN [Concomitant]
     Dosage: 4GM
     Dates: start: 20200619, end: 20200622

REACTIONS (6)
  - Irritability [Recovered/Resolved]
  - Pustule [Recovered/Resolved]
  - Dermatitis allergic [Recovered/Resolved]
  - Ejaculation disorder [Unknown]
  - Urinary retention [Unknown]
  - Pruritus [Recovered/Resolved]

NARRATIVE: CASE EVENT DATE: 20200620
